FAERS Safety Report 4396730-0 (Version None)
Quarter: 2004Q3

REPORT INFORMATION
  Report Type: 
  Country: None (occurrence: None)
  Receive Date: 20040709
  Receipt Date: 20040625
  Transmission Date: 20050211
  Serious: Yes (Hospitalization)
  Sender: FDA-Public Use
  Company Number: RENA-11081

PATIENT
  Age: 41 Year
  Sex: Male
  Weight: 75 kg

DRUGS (3)
  1. PHOSBLOCK - 250 MG TABLET [Suspect]
     Indication: HYPERPHOSPHATAEMIA
     Dosage: 0.75 G QD PO
     Route: 048
     Dates: start: 20030612, end: 20030801
  2. HUMAN INSULIN [Concomitant]
  3. CALCITRIOL [Concomitant]

REACTIONS (4)
  - APPENDICITIS [None]
  - DOUGLAS' POUCH EFFUSION [None]
  - FAECALOMA [None]
  - ILEUS [None]
